FAERS Safety Report 25598528 (Version 1)
Quarter: 2025Q3

REPORT INFORMATION
  Report Type: Spontaneous
  Country: CN (occurrence: CN)
  Receive Date: 20250723
  Receipt Date: 20250723
  Transmission Date: 20251021
  Serious: Yes (Hospitalization, Other)
  Sender: ABBVIE
  Company Number: CN-PFIZER INC-PV202500085129

PATIENT
  Age: 98 Year
  Sex: Male
  Weight: 70 kg

DRUGS (4)
  1. AVIBACTAM SODIUM\CEFTAZIDIME [Suspect]
     Active Substance: AVIBACTAM SODIUM\CEFTAZIDIME
     Indication: Therapeutic procedure
     Route: 041
     Dates: start: 20250624, end: 20250706
  2. XERAVA [Suspect]
     Active Substance: ERAVACYCLINE DIHYDROCHLORIDE
     Indication: Symptomatic treatment
     Route: 041
     Dates: start: 20250619, end: 20250703
  3. ULINASTATIN [Concomitant]
     Active Substance: ULINASTATIN
     Indication: Symptomatic treatment
     Dates: start: 20250615, end: 20250702
  4. LEVOCARNITINE [Concomitant]
     Active Substance: LEVOCARNITINE
     Indication: Symptomatic treatment
     Route: 041
     Dates: start: 20250612, end: 20250708

REACTIONS (3)
  - Blood bilirubin increased [Recovering/Resolving]
  - Coagulopathy [Recovering/Resolving]
  - Bilirubin conjugated increased [Recovering/Resolving]

NARRATIVE: CASE EVENT DATE: 20250101
